FAERS Safety Report 6925501-3 (Version None)
Quarter: 2010Q3

REPORT INFORMATION
  Report Type: 
  Country: None (occurrence: None)
  Receive Date: 20100816
  Receipt Date: 20100806
  Transmission Date: 20110219
  Serious: Yes (Hospitalization)
  Sender: FDA-Public Use
  Company Number: CA-ROCHE-720074

PATIENT
  Sex: Female
  Weight: 68.9 kg

DRUGS (13)
  1. BEVACIZUMAB [Suspect]
     Indication: GLIOBLASTOMA
     Dosage: FORM: INFUSION.
     Route: 042
     Dates: start: 20100427
  2. BEVACIZUMAB [Suspect]
     Route: 042
  3. ALENDRONATE SODIUM [Concomitant]
     Dosage: DRUG NAME: ALENDRONATE.
  4. CALCIUM [Concomitant]
  5. CELEXA [Concomitant]
  6. DEXAMETHASONE [Concomitant]
  7. DILANTIN [Concomitant]
  8. ONDANSETRON [Concomitant]
  9. RANITIDINE [Concomitant]
  10. RABEPRAZOLE SODIUM [Concomitant]
  11. SULFATRIM [Concomitant]
  12. SYNTHROID [Concomitant]
  13. YASMIN [Concomitant]

REACTIONS (2)
  - CONVULSION [None]
  - PYREXIA [None]
